FAERS Safety Report 24722063 (Version 4)
Quarter: 2025Q3

REPORT INFORMATION
  Report Type: Report from Study
  Country: US (occurrence: US)
  Receive Date: 20241211
  Receipt Date: 20250908
  Transmission Date: 20251020
  Serious: No
  Sender: SUNOVION
  Company Number: US-SUMITOMO PHARMA SWITZERLAND GMBH-2024SPA005419

PATIENT
  Age: 64 Year
  Sex: Male

DRUGS (1)
  1. ORGOVYX [Suspect]
     Active Substance: RELUGOLIX
     Indication: Prostate cancer
     Dosage: 120 MG, QD
     Route: 048
     Dates: start: 20240927

REACTIONS (7)
  - Memory impairment [Unknown]
  - Somnolence [Unknown]
  - Emotional disorder [Unknown]
  - Anxiety [Unknown]
  - Dizziness [Unknown]
  - Blood glucose increased [Unknown]
  - Incorrect dose administered [Recovered/Resolved]
